FAERS Safety Report 11135691 (Version 1)
Quarter: 2015Q2

REPORT INFORMATION
  Report Type: Spontaneous
  Country: US (occurrence: None)
  Receive Date: 20150522
  Receipt Date: 20150522
  Transmission Date: 20150821
  Serious: Yes (Hospitalization, Other)
  Sender: FDA-Public Use
  Company Number: None

PATIENT
  Age: 57 Year
  Sex: Male

DRUGS (1)
  1. AMPYRA [Suspect]
     Active Substance: DALFAMPRIDINE
     Indication: MULTIPLE SCLEROSIS
     Route: 048
     Dates: start: 20141224

REACTIONS (5)
  - Brain midline shift [None]
  - Seizure [None]
  - Subdural haematoma [None]
  - Intracranial pressure increased [None]
  - Fall [None]

NARRATIVE: CASE EVENT DATE: 20150414
